FAERS Safety Report 19072395 (Version 1)
Quarter: 2021Q1

REPORT INFORMATION
  Report Type: Spontaneous
  Country: US (occurrence: US)
  Receive Date: 20210329
  Receipt Date: 20210329
  Transmission Date: 20210420
  Serious: No
  Sender: FDA-Public Use
  Company Number: None

PATIENT
  Age: 70 Year
  Sex: Female
  Weight: 53.1 kg

DRUGS (5)
  1. PLENVU [Suspect]
     Active Substance: ASCORBIC ACID\POLYETHYLENE GLYCOL 3350\POTASSIUM CHLORIDE\SODIUM ASCORBATE\SODIUM CHLORIDE\SODIUM SULFATE
     Indication: COLONOSCOPY
     Dates: start: 20200716, end: 20200717
  2. VITAMIN D3 [Concomitant]
     Active Substance: CHOLECALCIFEROL
  3. VALOCYCLOVIR [Concomitant]
  4. BLUE BIOLOGY 61 CFU PROBIOTIC [Concomitant]
  5. IMVEXY [Concomitant]

REACTIONS (4)
  - Splenic rupture [None]
  - Headache [None]
  - Post procedural complication [None]
  - Dysgeusia [None]

NARRATIVE: CASE EVENT DATE: 20200716
